FAERS Safety Report 12979157 (Version 2)
Quarter: 2016Q4

REPORT INFORMATION
  Report Type: Spontaneous
  Country: FR (occurrence: FR)
  Receive Date: 20161128
  Receipt Date: 20161204
  Transmission Date: 20170207
  Serious: Yes (Other)
  Sender: FDA-Public Use
  Company Number: FR-GLAXOSMITHKLINE-FR2016GSK175031

PATIENT
  Sex: Female

DRUGS (2)
  1. NICOTINE. [Suspect]
     Active Substance: NICOTINE
     Indication: PRODUCT USED FOR UNKNOWN INDICATION
  2. PREGABALIN. [Interacting]
     Active Substance: PREGABALIN
     Indication: ANXIETY
     Dosage: 300 MILLIGRAMS DAILY
     Route: 048
     Dates: start: 2012

REACTIONS (14)
  - Withdrawal syndrome [Unknown]
  - Substance use [Unknown]
  - Euphoric mood [Unknown]
  - Drug dependence [Unknown]
  - Insomnia [Unknown]
  - Dependence [Unknown]
  - Drug tolerance [Unknown]
  - Drug interaction [Unknown]
  - Nicotine dependence [Unknown]
  - Tremor [Unknown]
  - Hyperhidrosis [Unknown]
  - Impaired quality of life [Unknown]
  - Asthenia [Unknown]
  - Suicidal ideation [Unknown]
